FAERS Safety Report 6433440-X (Version None)
Quarter: 2009Q4

REPORT INFORMATION
  Report Type: 
  Country: None (occurrence: None)
  Receive Date: 20091106
  Receipt Date: 20091106
  Transmission Date: 20100525
  Serious: Yes (Other)
  Sender: FDA-Public Use
  Company Number: None

PATIENT
  Age: 34 Year
  Sex: Female

DRUGS (2)
  1. BUPROPION HCL [Suspect]
  2. BUPROPION HCL [Concomitant]

REACTIONS (3)
  - INSOMNIA [None]
  - IRRITABILITY [None]
  - MOOD SWINGS [None]
